FAERS Safety Report 8123020-2 (Version None)
Quarter: 2012Q1

REPORT INFORMATION
  Report Type: 
  Country: None (occurrence: None)
  Receive Date: 20120206
  Receipt Date: 20120123
  Transmission Date: 20120608
  Serious: Yes (Death, Hospitalization, Other)
  Sender: FDA-Public Use
  Company Number: 2012MA001019

PATIENT
  Sex: Female
  Weight: 40.8237 kg

DRUGS (5)
  1. DIGOXIN [Suspect]
     Indication: HEART RATE IRREGULAR
     Dosage: 125 MG;QD;PO
     Route: 048
     Dates: start: 20080128, end: 20080414
  2. AVAPRO [Concomitant]
  3. LASIX [Concomitant]
  4. TOPROL-XL [Concomitant]
  5. WARFARIN SODIUM [Concomitant]

REACTIONS (34)
  - COORDINATION ABNORMAL [None]
  - COAGULOPATHY [None]
  - CARDIOMEGALY [None]
  - UNEVALUABLE EVENT [None]
  - CORONARY ARTERY DISEASE [None]
  - DIVERTICULITIS [None]
  - HYPERTENSION [None]
  - BALANCE DISORDER [None]
  - DYSPNOEA [None]
  - ECONOMIC PROBLEM [None]
  - ATRIAL FIBRILLATION [None]
  - ARRHYTHMIA [None]
  - LOSS OF PROPRIOCEPTION [None]
  - LETHARGY [None]
  - FEMUR FRACTURE [None]
  - OEDEMA [None]
  - BRADYCARDIA [None]
  - ACTIVITIES OF DAILY LIVING IMPAIRED [None]
  - MENTAL STATUS CHANGES [None]
  - DEHYDRATION [None]
  - ARTERIOSCLEROSIS [None]
  - RIB FRACTURE [None]
  - FALL [None]
  - OROPHARYNGEAL PAIN [None]
  - MULTIPLE INJURIES [None]
  - PAIN [None]
  - OSTEOPOROSIS [None]
  - SENSORY DISTURBANCE [None]
  - PALPITATIONS [None]
  - CONFUSIONAL STATE [None]
  - BODY MASS INDEX DECREASED [None]
  - BLOOD UREA INCREASED [None]
  - EMPHYSEMA [None]
  - PLEURAL EFFUSION [None]
